FAERS Safety Report 4751749-2 (Version None)
Quarter: 2005Q3

REPORT INFORMATION
  Report Type: 
  Country: None (occurrence: None)
  Receive Date: 20050822
  Receipt Date: 20050822
  Transmission Date: 20060218
  Serious: No
  Sender: FDA-Public Use
  Company Number: None

PATIENT
  Age: 60 Year
  Sex: Male
  Weight: 79.3795 kg

DRUGS (1)
  1. INVANZ [Suspect]
     Indication: CELLULITIS
     Dosage: 1 GRAM   DAILY   IV DRIP
     Route: 041
     Dates: start: 20050818, end: 20050819

REACTIONS (1)
  - RASH ERYTHEMATOUS [None]
